FAERS Safety Report 4904494-4 (Version None)
Quarter: 2006Q1

REPORT INFORMATION
  Report Type: 
  Country: None (occurrence: None)
  Receive Date: 20060208
  Receipt Date: 20050912
  Transmission Date: 20060701
  Serious: No
  Sender: FDA-Public Use
  Company Number: US-GLAXOSMITHKLINE-A0573835A

PATIENT
  Age: 71 Year
  Sex: Female

DRUGS (4)
  1. PAXIL [Suspect]
     Indication: DEPRESSION
     Dosage: 40MG PER DAY
     Route: 048
  2. CLONAZEPAM [Concomitant]
  3. TYLENOL [Concomitant]
  4. PREVACID [Concomitant]

REACTIONS (1)
  - DEPRESSION [None]
